FAERS Safety Report 17865927 (Version 3)
Quarter: 2020Q3

REPORT INFORMATION
  Report Type: Spontaneous
  Country: US (occurrence: US)
  Receive Date: 20200605
  Receipt Date: 20200716
  Transmission Date: 20201103
  Serious: No
  Sender: FDA-Public Use
  Company Number: US-PFIZER INC-2020220008

PATIENT
  Age: 70 Year
  Sex: Female

DRUGS (2)
  1. IBRANCE [Suspect]
     Active Substance: PALBOCICLIB
     Dosage: 75 MG
     Dates: start: 20180310
  2. IBRANCE [Suspect]
     Active Substance: PALBOCICLIB
     Dosage: UNK (75 MG)
     Dates: start: 20180714

REACTIONS (2)
  - Arthralgia [Unknown]
  - Wheezing [Unknown]
